FAERS Safety Report 21906610 (Version 1)
Quarter: 2023Q1

REPORT INFORMATION
  Report Type: Spontaneous
  Country: US (occurrence: US)
  Receive Date: 20230125
  Receipt Date: 20230125
  Transmission Date: 20230418
  Serious: No
  Sender: FDA-Public Use
  Company Number: US-BAUSCHBL-2023BNL000456

PATIENT
  Age: 66 Year
  Sex: Female

DRUGS (6)
  1. PROLENSA [Suspect]
     Active Substance: BROMFENAC SODIUM
     Indication: Glaucoma
     Route: 047
  2. PROLENSA [Suspect]
     Active Substance: BROMFENAC SODIUM
     Indication: Nerve compression
  3. PROLENSA [Suspect]
     Active Substance: BROMFENAC SODIUM
     Indication: Rheumatoid arthritis
  4. PROLENSA [Suspect]
     Active Substance: BROMFENAC SODIUM
     Indication: Eye pain
  5. PROLENSA [Suspect]
     Active Substance: BROMFENAC SODIUM
     Indication: Off label use
  6. RESTASIS [Concomitant]
     Active Substance: CYCLOSPORINE
     Indication: Product used for unknown indication

REACTIONS (3)
  - Off label use [Unknown]
  - Product packaging quantity issue [Unknown]
  - Product quality issue [Unknown]
